FAERS Safety Report 6538699-6 (Version None)
Quarter: 2010Q1

REPORT INFORMATION
  Report Type: 
  Country: None (occurrence: None)
  Receive Date: 20100113
  Receipt Date: 20100113
  Transmission Date: 20100710
  Serious: No
  Sender: FDA-Public Use
  Company Number: None

PATIENT
  Age: 49 Year
  Sex: Female
  Weight: 56.6996 kg

DRUGS (2)
  1. ZICAM NOT SURE ZICAM [Suspect]
     Indication: NASAL CONGESTION
     Dosage: NO SAY ON THE BOTTLE/ NO BOX N/A NASAL
     Route: 045
     Dates: start: 20041018, end: 20041019
  2. ZICAM NOT SURE ZICAM [Suspect]
     Indication: NASOPHARYNGITIS
     Dosage: NO SAY ON THE BOTTLE/ NO BOX N/A NASAL
     Route: 045
     Dates: start: 20041018, end: 20041019

REACTIONS (1)
  - OLFACTORY NERVE DISORDER [None]
